FAERS Safety Report 7924923-1 (Version None)
Quarter: 2011Q4

REPORT INFORMATION
  Report Type: 
  Country: None (occurrence: None)
  Receive Date: 20111118
  Receipt Date: 20110330
  Transmission Date: 20120403
  Serious: No
  Sender: FDA-Public Use
  Company Number: US-AMGEN-USASP2010010034

PATIENT
  Age: 65 Year
  Sex: Female

DRUGS (4)
  1. TREXALL [Concomitant]
     Dates: start: 20100101
  2. ENBREL [Suspect]
     Dates: start: 20081029, end: 20110201
  3. ENBREL [Suspect]
     Dates: start: 20081029, end: 20110201
  4. ENBREL [Suspect]
     Indication: RHEUMATOID ARTHRITIS
     Dosage: 50 MG, QWK
     Dates: start: 20081029, end: 20110201

REACTIONS (3)
  - PAIN [None]
  - GAIT DISTURBANCE [None]
  - JOINT SWELLING [None]
